FAERS Safety Report 24906378 (Version 1)
Quarter: 2025Q1

REPORT INFORMATION
  Report Type: Report from Study
  Country: DE (occurrence: DE)
  Receive Date: 20250130
  Receipt Date: 20250130
  Transmission Date: 20250408
  Serious: Yes (Other)
  Sender: ABBVIE
  Company Number: DE-ABBVIE-6101144

PATIENT
  Age: 63 Year
  Sex: Female
  Weight: 68 kg

DRUGS (1)
  1. RINVOQ [Suspect]
     Active Substance: UPADACITINIB
     Indication: Neurodermatitis
     Route: 048
     Dates: start: 20231107

REACTIONS (3)
  - Muscle tightness [Recovered/Resolved]
  - Dermatitis atopic [Unknown]
  - Adverse event [Unknown]

NARRATIVE: CASE EVENT DATE: 20250102
